FAERS Safety Report 10091382 (Version 1)
Quarter: 2014Q2

REPORT INFORMATION
  Report Type: Spontaneous
  Country: GR (occurrence: GR)
  Receive Date: 20140421
  Receipt Date: 20140421
  Transmission Date: 20141212
  Serious: Yes (Other)
  Sender: FDA-Public Use
  Company Number: GR-TAKEDA-2014TJP005046

PATIENT
  Age: 61 Year
  Sex: Male

DRUGS (3)
  1. ACTOS [Suspect]
     Indication: TYPE 2 DIABETES MELLITUS
     Dosage: 30 MG, QD
     Route: 048
     Dates: start: 2009
  2. GLUCOPHAGE [Concomitant]
     Dosage: UNK
  3. ATACAND [Concomitant]
     Dosage: UNK

REACTIONS (1)
  - Haematuria [Not Recovered/Not Resolved]
